FAERS Safety Report 19172413 (Version 1)
Quarter: 2021Q2

REPORT INFORMATION
  Report Type: Spontaneous
  Country: US (occurrence: US)
  Receive Date: 20210423
  Receipt Date: 20210423
  Transmission Date: 20210717
  Serious: Yes (Disabling, Other)
  Sender: FDA-Public Use
  Company Number: US-EMD SERONO-7181229

PATIENT
  Age: 30 Year
  Sex: Female

DRUGS (7)
  1. LEVOTHYROXINE. [Concomitant]
     Active Substance: LEVOTHYROXINE
     Indication: THYROXINE FREE ABNORMAL
  2. ALEVE [Concomitant]
     Active Substance: NAPROXEN SODIUM
     Indication: PAIN
  3. REBIF [Suspect]
     Active Substance: INTERFERON BETA-1A
     Indication: MULTIPLE SCLEROSIS
     Route: 058
     Dates: start: 20021101
  4. REBIF [Suspect]
     Active Substance: INTERFERON BETA-1A
     Dosage: REBI?JECT II/MANUAL
     Route: 058
     Dates: start: 20151218
  5. VICODIN [Concomitant]
     Active Substance: ACETAMINOPHEN\HYDROCODONE BITARTRATE
     Indication: PAIN
  6. CLONAZEPAM. [Concomitant]
     Active Substance: CLONAZEPAM
     Indication: ANXIETY
  7. LEVOTHYROXINE. [Concomitant]
     Active Substance: LEVOTHYROXINE
     Indication: THYROID STIMULATING HORMONE DEFICIENCY

REACTIONS (5)
  - Multiple sclerosis [Not Recovered/Not Resolved]
  - Optic neuritis [Recovering/Resolving]
  - Multiple sclerosis [Recovering/Resolving]
  - Hyperhidrosis [Not Recovered/Not Resolved]
  - Flushing [Not Recovered/Not Resolved]

NARRATIVE: CASE EVENT DATE: 2012
